FAERS Safety Report 8077082-1 (Version None)
Quarter: 2012Q1

REPORT INFORMATION
  Report Type: 
  Country: None (occurrence: None)
  Receive Date: 20120127
  Receipt Date: 20120120
  Transmission Date: 20120608
  Serious: Yes (Hospitalization, Other)
  Sender: FDA-Public Use
  Company Number: PHHY2012FR005603

PATIENT
  Sex: Male

DRUGS (3)
  1. LAMICTAL [Concomitant]
     Indication: EPILEPSY
     Dosage: 1 DF, BID
     Dates: start: 20111001, end: 20111117
  2. TEGRETOL [Suspect]
     Indication: EPILEPSY
     Dosage: 1 DF, BID (400 MG)
     Dates: end: 20111101
  3. TEGRETOL [Suspect]
     Dosage: 1 DF, BID (400 MG)
     Dates: start: 20111117, end: 20111124

REACTIONS (8)
  - BUNDLE BRANCH BLOCK RIGHT [None]
  - CARDIAC ARREST [None]
  - ATRIOVENTRICULAR BLOCK [None]
  - BUNDLE BRANCH BLOCK LEFT [None]
  - HYPOTENSION [None]
  - LYME DISEASE [None]
  - SYNCOPE [None]
  - HEART RATE DECREASED [None]
